FAERS Safety Report 24939103 (Version 1)
Quarter: 2025Q1

REPORT INFORMATION
  Report Type: Spontaneous
  Country: US (occurrence: US)
  Receive Date: 20250206
  Receipt Date: 20250206
  Transmission Date: 20250409
  Serious: Yes (Hospitalization)
  Sender: SAREPTA THERAPEUTICS
  Company Number: US-SAREPTA THERAPEUTICS INC.-SRP2025-005570

PATIENT
  Sex: Male

DRUGS (7)
  1. ELEVIDYS [Suspect]
     Active Substance: DELANDISTROGENE MOXEPARVOVEC-ROKL
     Indication: Product used for unknown indication
     Route: 042
     Dates: start: 20241112, end: 20241112
  2. EMFLAZA [Concomitant]
     Active Substance: DEFLAZACORT
     Indication: Product used for unknown indication
     Dosage: 24 MILLIGRAM, QD
     Dates: start: 20250104
  3. PREDNISONE [Concomitant]
     Active Substance: PREDNISONE
     Indication: Product used for unknown indication
     Dates: end: 20241217
  4. PREDNISONE [Concomitant]
     Active Substance: PREDNISONE
     Dates: start: 20241217, end: 20241226
  5. PREDNISONE [Concomitant]
     Active Substance: PREDNISONE
     Dates: start: 20241226
  6. PREDNISONE [Concomitant]
     Active Substance: PREDNISONE
     Dosage: 80 MILLIGRAM, QD
  7. FAMOTIDINE [Concomitant]
     Active Substance: FAMOTIDINE
     Indication: Gastritis prophylaxis
     Dosage: 20 MILLIGRAM, BID
     Route: 048
     Dates: start: 20241217

REACTIONS (3)
  - Liver injury [Recovering/Resolving]
  - Mood swings [Unknown]
  - Gamma-glutamyltransferase increased [Unknown]

NARRATIVE: CASE EVENT DATE: 20241217
